FAERS Safety Report 10005913 (Version 3)
Quarter: 2014Q2

REPORT INFORMATION
  Report Type: Report from Study
  Country: CA (occurrence: CA)
  Receive Date: 20140313
  Receipt Date: 20140403
  Transmission Date: 20141212
  Serious: Yes (Other)
  Sender: FDA-Public Use
  Company Number: PHHY2014CA016754

PATIENT
  Age: 68 Year
  Sex: Male

DRUGS (2)
  1. SANDOSTATIN LAR [Suspect]
     Indication: COLON CANCER METASTATIC
     Dosage: 30 MG, QMO
     Route: 030
     Dates: start: 20140105
  2. SANDOSTATIN LAR [Suspect]
     Indication: INTESTINAL OBSTRUCTION

REACTIONS (8)
  - Terminal state [Unknown]
  - Diarrhoea [Unknown]
  - Blood pressure systolic increased [Unknown]
  - Depression [Unknown]
  - Disorientation [Unknown]
  - Fear of death [Unknown]
  - Asthenia [Unknown]
  - Drug ineffective [Unknown]
